FAERS Safety Report 24838166 (Version 2)
Quarter: 2025Q1

REPORT INFORMATION
  Report Type: Spontaneous
  Country: US (occurrence: US)
  Receive Date: 20250113
  Receipt Date: 20250213
  Transmission Date: 20250408
  Serious: No
  Sender: PFIZER
  Company Number: US-PFIZER INC-202400310300

PATIENT
  Age: 16 Year
  Sex: Male
  Weight: 81.633 kg

DRUGS (1)
  1. GENOTROPIN [Suspect]
     Active Substance: SOMATROPIN
     Indication: Prader-Willi syndrome
     Dosage: 2.2 EVERY NIGHT AROUND BEDTIME
     Dates: start: 2015

REACTIONS (4)
  - Device use issue [Unknown]
  - Device information output issue [Unknown]
  - Device power source issue [Unknown]
  - Drug dose omission by device [Unknown]

NARRATIVE: CASE EVENT DATE: 20241231
